FAERS Safety Report 10910901 (Version 2)
Quarter: 2015Q2

REPORT INFORMATION
  Report Type: Report from Study
  Country: JP (occurrence: JP)
  Receive Date: 20150312
  Receipt Date: 20150408
  Transmission Date: 20150821
  Serious: Yes (Death, Life-Threatening, Hospitalization)
  Sender: FDA-Public Use
  Company Number: JP-EISAI MEDICAL RESEARCH-EC-2014-002716

PATIENT
  Age: 80 Year
  Sex: Male
  Weight: 60 kg

DRUGS (16)
  1. STROCAIN [Concomitant]
     Active Substance: OXETHAZAINE
  2. HYALEIN [Concomitant]
     Active Substance: HYALURONATE SODIUM
  3. FLUMETHOLON [Concomitant]
     Active Substance: FLUOROMETHOLONE
  4. OLMETEC [Concomitant]
     Active Substance: OLMESARTAN MEDOXOMIL
  5. ADALAT CC [Concomitant]
     Active Substance: NIFEDIPINE
  6. NEXIUM [Concomitant]
     Active Substance: ESOMEPRAZOLE MAGNESIUM
  7. CHOREITO [Concomitant]
  8. HEPARINOID [Concomitant]
     Active Substance: CHONDROITIN SULFATE (BOVINE)
  9. ULCERLMIN [Concomitant]
     Active Substance: SUCRALFATE
  10. MERCAZOLE [Concomitant]
     Active Substance: CARBIMAZOLE
  11. TRAMCET [Concomitant]
     Active Substance: ACETAMINOPHEN\TRAMADOL
  12. ACTOS [Concomitant]
     Active Substance: PIOGLITAZONE HYDROCHLORIDE
  13. NESINA [Concomitant]
     Active Substance: ALOGLIPTIN BENZOATE
  14. LENVATINIB [Suspect]
     Active Substance: LENVATINIB
     Indication: HEPATOCELLULAR CARCINOMA
     Route: 048
     Dates: start: 20141014, end: 20141222
  15. MAINTATE [Concomitant]
     Active Substance: BISOPROLOL FUMARATE
  16. HARNAL [Concomitant]
     Active Substance: TAMSULOSIN HYDROCHLORIDE

REACTIONS (3)
  - Jaundice cholestatic [Recovering/Resolving]
  - Hepatic failure [Fatal]
  - Renal failure [Fatal]

NARRATIVE: CASE EVENT DATE: 20141222
